FAERS Safety Report 22955083 (Version 6)
Quarter: 2023Q4

REPORT INFORMATION
  Report Type: Spontaneous
  Country: US (occurrence: US)
  Receive Date: 20230918
  Receipt Date: 20231219
  Transmission Date: 20240110
  Serious: Yes (Other)
  Sender: FDA-Public Use
  Company Number: US-PFIZER INC-202300297886

PATIENT
  Age: 80 Year
  Sex: Female
  Weight: 78.02 kg

DRUGS (1)
  1. TIKOSYN [Suspect]
     Active Substance: DOFETILIDE
     Indication: Atrial fibrillation
     Dosage: 250 UG, 2X/DAY
     Route: 048
     Dates: start: 2023

REACTIONS (2)
  - Neovascular age-related macular degeneration [Unknown]
  - Therapeutic product effect incomplete [Unknown]
